FAERS Safety Report 8631561 (Version 2)
Quarter: 2013Q3

REPORT INFORMATION
  Report Type: Spontaneous
  Country: US (occurrence: US)
  Receive Date: 20120625
  Receipt Date: 20130725
  Transmission Date: 20140515
  Serious: Yes (Hospitalization)
  Sender: FDA-Public Use
  Company Number: US-BIOGENIDEC-2012BI021019

PATIENT
  Age: 41 Year
  Sex: Female

DRUGS (4)
  1. AVONEX [Suspect]
     Indication: MULTIPLE SCLEROSIS
     Route: 030
     Dates: start: 19980620, end: 2003
  2. AVONEX [Suspect]
     Indication: MULTIPLE SCLEROSIS
     Route: 030
     Dates: start: 2003
  3. FOSAMAX [Concomitant]
     Indication: ROUTINE HEALTH MAINTENANCE
  4. VITAMIN D [Concomitant]
     Indication: ROUTINE HEALTH MAINTENANCE

REACTIONS (16)
  - Osteoarthritis [Recovered/Resolved]
  - Device damage [Recovered/Resolved]
  - Femur fracture [Recovered/Resolved]
  - Periprosthetic fracture [Recovered/Resolved]
  - Arthritis infective [Recovered/Resolved]
  - Sepsis [Recovered/Resolved]
  - Wound infection [Recovered/Resolved]
  - Renal failure [Recovered/Resolved]
  - Renal failure acute [Recovered/Resolved]
  - Blood glucose decreased [Recovered/Resolved]
  - Disorientation [Recovered/Resolved]
  - Arthritis [Recovered/Resolved]
  - Arthralgia [Recovered/Resolved]
  - Hereditary optic atrophy [Not Recovered/Not Resolved]
  - Fall [Recovered/Resolved]
  - Multiple sclerosis relapse [Recovered/Resolved]
